FAERS Safety Report 8855008 (Version 1)
Quarter: 2012Q4

REPORT INFORMATION
  Report Type: 
  Country: US (occurrence: US)
  Receive Date: 20121023
  Receipt Date: 20121023
  Transmission Date: 20130627
  Serious: No
  Sender: FDA-Public Use
  Company Number: US-PFIZER INC-2012264117

PATIENT

DRUGS (3)
  1. CHANTIX [Suspect]
     Dosage: 0.5 mg, UNK
     Dates: start: 201206, end: 2012
  2. CHANTIX [Suspect]
     Dosage: 0.5 mg, 2x/day
     Dates: start: 2012, end: 2012
  3. CHANTIX [Suspect]
     Dosage: 1 mg, 2x/day
     Dates: start: 2012

REACTIONS (1)
  - Insomnia [Not Recovered/Not Resolved]
